FAERS Safety Report 10678388 (Version 1)
Quarter: 2014Q4

REPORT INFORMATION
  Report Type: Report from Study
  Country: CA (occurrence: CA)
  Receive Date: 20141229
  Receipt Date: 20141229
  Transmission Date: 20150529
  Serious: Yes (Other)
  Sender: FDA-Public Use
  Company Number: CA-JNJFOC-20141214133

PATIENT
  Age: 17 Year
  Sex: Male
  Weight: 54 kg

DRUGS (1)
  1. REMICADE [Suspect]
     Active Substance: INFLIXIMAB
     Indication: CROHN^S DISEASE
     Route: 042
     Dates: start: 20140429, end: 20141024

REACTIONS (3)
  - Small intestinal resection [Unknown]
  - Intestinal resection [Unknown]
  - Ileostomy [Unknown]

NARRATIVE: CASE EVENT DATE: 20141202
